FAERS Safety Report 8294207 (Version 10)
Quarter: 2014Q3

REPORT INFORMATION
  Report Type: Spontaneous
  Country: US (occurrence: None)
  Receive Date: 20111209
  Receipt Date: 20140902
  Transmission Date: 20150326
  Serious: Yes (Life-Threatening, Hospitalization, Other)
  Sender: FDA-Public Use
  Company Number: ADR-2011-11699

PATIENT
  Sex: Female

DRUGS (2)
  1. ORAL BACLOFEN [Suspect]
     Active Substance: BACLOFEN
  2. LIORESAL [Suspect]
     Active Substance: BACLOFEN
     Indication: MUSCLE SPASTICITY

REACTIONS (33)
  - Dysarthria [None]
  - Infusion site cyst [None]
  - Arachnoiditis [None]
  - Device dislocation [None]
  - Obstruction [None]
  - Bradyphrenia [None]
  - Muscle spasticity [None]
  - Drug withdrawal syndrome [None]
  - Device breakage [None]
  - Posture abnormal [None]
  - Unevaluable event [None]
  - Nervous system disorder [None]
  - Feeling abnormal [None]
  - Hypertonia [None]
  - Drug tolerance [None]
  - Adhesion [None]
  - Convulsion [None]
  - Peritoneal necrosis [None]
  - Infection [None]
  - Paraesthesia [None]
  - Underdose [None]
  - Musculoskeletal stiffness [None]
  - Implant site fibrosis [None]
  - Gastric perforation [None]
  - Headache [None]
  - Abnormal behaviour [None]
  - No therapeutic response [None]
  - Condition aggravated [None]
  - Gastric volvulus [None]
  - Peritonitis [None]
  - Muscle tightness [None]
  - Neck injury [None]
  - Hallucination [None]
